FAERS Safety Report 7944125-2 (Version None)
Quarter: 2011Q4

REPORT INFORMATION
  Report Type: 
  Country: None (occurrence: None)
  Receive Date: 20111128
  Receipt Date: 20111123
  Transmission Date: 20120403
  Serious: Yes (Death)
  Sender: FDA-Public Use
  Company Number: ES-ELI_LILLY_AND_COMPANY-ES201111007400

PATIENT
  Sex: Female
  Weight: 45 kg

DRUGS (4)
  1. SINEMET [Concomitant]
     Indication: DEMENTIA
     Dosage: 7 DF, QD
     Route: 048
  2. ACTONEL [Concomitant]
     Indication: OSTEOPOROSIS
     Dosage: 1 DF, WEEKLY (1/W)
     Route: 048
  3. FORTEO [Suspect]
     Indication: OSTEOPOROSIS
     Dosage: 20 UG, QD
     Route: 058
     Dates: start: 20091119
  4. AMILORIDE HCL AND HYDROCHLOROTHIAZIDE [Concomitant]
     Indication: HYPERTENSION
     Dosage: 1 DF, QD
     Route: 048

REACTIONS (1)
  - DEATH [None]
